FAERS Safety Report 5819570-1 (Version None)
Quarter: 2008Q3

REPORT INFORMATION
  Report Type: 
  Country: None (occurrence: None)
  Receive Date: 20080717
  Receipt Date: 20080710
  Transmission Date: 20090109
  Serious: Yes (Hospitalization)
  Sender: FDA-Public Use
  Company Number: WAES0806CHL00001

PATIENT
  Age: 58 Year
  Sex: Male

DRUGS (1)
  1. COZAAR [Suspect]
     Dosage: PO
     Route: 048

REACTIONS (12)
  - BLOOD CREATINE PHOSPHOKINASE INCREASED [None]
  - BLOOD CREATININE INCREASED [None]
  - BUNDLE BRANCH BLOCK LEFT [None]
  - CARDIAC FAILURE [None]
  - CARDIOMEGALY [None]
  - ERYTHEMA [None]
  - HYPERSENSITIVITY [None]
  - MYALGIA [None]
  - OEDEMA PERIPHERAL [None]
  - PNEUMONIA [None]
  - PULMONARY CONGESTION [None]
  - SKIN WARM [None]
